FAERS Safety Report 7894356-5 (Version None)
Quarter: 2011Q4

REPORT INFORMATION
  Report Type: 
  Country: None (occurrence: None)
  Receive Date: 20111104
  Receipt Date: 20111026
  Transmission Date: 20120403
  Serious: Yes (Hospitalization, Other)
  Sender: FDA-Public Use
  Company Number: US-ASTRAZENECA-2010SE41436

PATIENT
  Age: 52 Year
  Sex: Male
  Weight: 97.5 kg

DRUGS (14)
  1. RITALIN [Concomitant]
     Indication: POST-TRAUMATIC STRESS DISORDER
  2. PAINKILLERS [Concomitant]
  3. LITHIUM CITRATE [Concomitant]
     Indication: BIPOLAR DISORDER
  4. LITHIUM CITRATE [Concomitant]
  5. ANTIBIOTICS [Concomitant]
  6. CLINOZEPHINE [Concomitant]
     Indication: POST-TRAUMATIC STRESS DISORDER
  7. LAMICTAL [Concomitant]
     Indication: POST-TRAUMATIC STRESS DISORDER
  8. LITHIUM CITRATE [Concomitant]
  9. SEROQUEL [Suspect]
     Indication: BIPOLAR DISORDER
     Route: 048
     Dates: start: 20070101
  10. SEROQUEL [Suspect]
     Route: 048
  11. CLONAZEPAM [Concomitant]
  12. WELLBUTRIN [Concomitant]
     Indication: POST-TRAUMATIC STRESS DISORDER
  13. LITHIUM CITRATE [Concomitant]
     Indication: POST-TRAUMATIC STRESS DISORDER
  14. TOMAZAPAM [Concomitant]
     Indication: POST-TRAUMATIC STRESS DISORDER

REACTIONS (9)
  - DRUG DOSE OMISSION [None]
  - STAPHYLOCOCCAL INFECTION [None]
  - UNDERDOSE [None]
  - DEBRIDEMENT [None]
  - PRURITUS [None]
  - NERVOUSNESS [None]
  - POST-TRAUMATIC STRESS DISORDER [None]
  - HEPATIC LESION [None]
  - MALAISE [None]
